FAERS Safety Report 26112227 (Version 2)
Quarter: 2025Q4

REPORT INFORMATION
  Report Type: Spontaneous
  Country: EU (occurrence: EU)
  Receive Date: 20251202
  Receipt Date: 20251208
  Transmission Date: 20260117
  Serious: Yes (Life-Threatening, Disabling, Other)
  Sender: MYLAN
  Company Number: None

PATIENT
  Age: 35 Year
  Sex: Male
  Weight: 56 kg

DRUGS (16)
  1. SERTRALINE [Suspect]
     Active Substance: SERTRALINE HYDROCHLORIDE
     Indication: Major depression
     Dosage: 100 MILLIGRAM, QD (1 TABLET PER DAY)
     Dates: start: 20210815, end: 20220415
  2. SERTRALINE [Suspect]
     Active Substance: SERTRALINE HYDROCHLORIDE
     Dosage: 100 MILLIGRAM, QD (1 TABLET PER DAY)
     Dates: start: 20210815, end: 20220415
  3. SERTRALINE [Suspect]
     Active Substance: SERTRALINE HYDROCHLORIDE
     Dosage: 100 MILLIGRAM, QD (1 TABLET PER DAY)
     Route: 048
     Dates: start: 20210815, end: 20220415
  4. SERTRALINE [Suspect]
     Active Substance: SERTRALINE HYDROCHLORIDE
     Dosage: 100 MILLIGRAM, QD (1 TABLET PER DAY)
     Route: 048
     Dates: start: 20210815, end: 20220415
  5. SERTRALINE [Suspect]
     Active Substance: SERTRALINE HYDROCHLORIDE
     Dosage: 50 MILLIGRAM, QD (RESTARTED WITH 50 MG DOSE)
     Dates: start: 202401
  6. SERTRALINE [Suspect]
     Active Substance: SERTRALINE HYDROCHLORIDE
     Dosage: 50 MILLIGRAM, QD (RESTARTED WITH 50 MG DOSE)
     Dates: start: 202401
  7. SERTRALINE [Suspect]
     Active Substance: SERTRALINE HYDROCHLORIDE
     Dosage: 50 MILLIGRAM, QD (RESTARTED WITH 50 MG DOSE)
     Route: 048
     Dates: start: 202401
  8. SERTRALINE [Suspect]
     Active Substance: SERTRALINE HYDROCHLORIDE
     Dosage: 50 MILLIGRAM, QD (RESTARTED WITH 50 MG DOSE)
     Route: 048
     Dates: start: 202401
  9. ESCITALOPRAM [Suspect]
     Active Substance: ESCITALOPRAM OXALATE
     Indication: Depression
     Dosage: 10 MILLIGRAM, QD (1 TABLET PER DAY)
     Dates: start: 20150715, end: 20150915
  10. ESCITALOPRAM [Suspect]
     Active Substance: ESCITALOPRAM OXALATE
     Indication: Anxiety
     Dosage: 10 MILLIGRAM, QD (1 TABLET PER DAY)
     Route: 048
     Dates: start: 20150715, end: 20150915
  11. ESCITALOPRAM [Suspect]
     Active Substance: ESCITALOPRAM OXALATE
     Dosage: 10 MILLIGRAM, QD (1 TABLET PER DAY)
     Route: 048
     Dates: start: 20150715, end: 20150915
  12. ESCITALOPRAM [Suspect]
     Active Substance: ESCITALOPRAM OXALATE
     Dosage: 10 MILLIGRAM, QD (1 TABLET PER DAY)
     Dates: start: 20150715, end: 20150915
  13. CYMBALTA [Suspect]
     Active Substance: DULOXETINE HYDROCHLORIDE
     Indication: Product used for unknown indication
     Dosage: 30 MILLIGRAM, QD (1 TABLET PER DAY)
     Dates: start: 20130315, end: 20130815
  14. CYMBALTA [Suspect]
     Active Substance: DULOXETINE HYDROCHLORIDE
     Dosage: 30 MILLIGRAM, QD (1 TABLET PER DAY)
     Route: 048
     Dates: start: 20130315, end: 20130815
  15. CYMBALTA [Suspect]
     Active Substance: DULOXETINE HYDROCHLORIDE
     Dosage: 30 MILLIGRAM, QD (1 TABLET PER DAY)
     Route: 048
     Dates: start: 20130315, end: 20130815
  16. CYMBALTA [Suspect]
     Active Substance: DULOXETINE HYDROCHLORIDE
     Dosage: 30 MILLIGRAM, QD (1 TABLET PER DAY)
     Dates: start: 20130315, end: 20130815

REACTIONS (11)
  - Sexual dysfunction [Recovering/Resolving]
  - Depressed mood [Unknown]
  - Sleep disorder [Unknown]
  - Pain [Unknown]
  - Apathy [Unknown]
  - Cognitive disorder [Unknown]
  - Vision blurred [Unknown]
  - Balance disorder [Unknown]
  - Memory impairment [Unknown]
  - Disturbance in attention [Unknown]
  - Fatigue [Unknown]
